FAERS Safety Report 6105697-6 (Version None)
Quarter: 2009Q1

REPORT INFORMATION
  Report Type: 
  Country: None (occurrence: None)
  Receive Date: 20090306
  Receipt Date: 20090223
  Transmission Date: 20090719
  Serious: Yes (Hospitalization, Other)
  Sender: FDA-Public Use
  Company Number: CH-PFIZER INC-2006143119

PATIENT

DRUGS (6)
  1. SUNITINIB MALATE [Suspect]
     Indication: GASTROINTESTINAL STROMAL TUMOUR
     Dosage: 37.5 MG, 1X/DAY (4 WEEKS/2 WEEKS PAUSE)
     Route: 048
     Dates: start: 20051222
  2. SUNITINIB MALATE [Suspect]
     Dosage: DAILY: 4WEEKS/2WE PAUSE
     Route: 048
     Dates: start: 20061224
  3. FLUDEX [Concomitant]
     Indication: HYPERTENSION
     Route: 048
     Dates: start: 20040101, end: 20061105
  4. PANTOZOL [Concomitant]
     Route: 048
     Dates: start: 20040101
  5. APROVEL [Concomitant]
     Indication: HYPERTENSION
     Route: 048
     Dates: start: 20060401
  6. TAVEGYL [Concomitant]
     Route: 048
     Dates: start: 20060315

REACTIONS (3)
  - CARDIAC FAILURE [None]
  - HEPATOTOXICITY [None]
  - THROMBOCYTOPENIA [None]
